FAERS Safety Report 9099412 (Version 5)
Quarter: 2013Q3

REPORT INFORMATION
  Report Type: Spontaneous
  Country: GB (occurrence: GB)
  Receive Date: 20130214
  Receipt Date: 20130705
  Transmission Date: 20140515
  Serious: Yes (Death, Other)
  Sender: FDA-Public Use
  Company Number: PHFR2013GB001197

PATIENT
  Age: 31 Year
  Sex: Male
  Weight: 78 kg

DRUGS (1)
  1. CLOZARIL [Suspect]
     Indication: SCHIZOPHRENIA
     Dosage: UNK
     Dates: start: 20100408

REACTIONS (8)
  - Arteriosclerosis coronary artery [Fatal]
  - Drug abuse [Fatal]
  - Myocardial infarction [Fatal]
  - Psychomotor hyperactivity [Unknown]
  - Blood glucose decreased [Unknown]
  - Abnormal behaviour [Unknown]
  - Unresponsive to stimuli [Unknown]
  - Peripheral coldness [Unknown]
